FAERS Safety Report 7220760-4 (Version None)
Quarter: 2011Q1

REPORT INFORMATION
  Report Type: 
  Country: None (occurrence: None)
  Receive Date: 20110111
  Receipt Date: 20110104
  Transmission Date: 20110831
  Serious: Yes (Hospitalization)
  Sender: FDA-Public Use
  Company Number: US-PFIZER INC-2011001624

PATIENT
  Sex: Female

DRUGS (2)
  1. OXYCODONE [Concomitant]
     Indication: ARTHRALGIA
     Dosage: UNK
  2. LYRICA [Suspect]
     Dosage: UNK
     Route: 048

REACTIONS (2)
  - PAIN [None]
  - NEOPLASM MALIGNANT [None]
